FAERS Safety Report 25189061 (Version 1)
Quarter: 2025Q2

REPORT INFORMATION
  Report Type: Report from Study
  Country: US (occurrence: US)
  Receive Date: 20250411
  Receipt Date: 20250411
  Transmission Date: 20250716
  Serious: No
  Sender: ACADIA PHARMACEUTICALS
  Company Number: US-ACADIA PHARMACEUTICALS INC.-ACA-2025-PIM-003986

PATIENT
  Sex: Female

DRUGS (16)
  1. NUPLAZID [Suspect]
     Active Substance: PIMAVANSERIN TARTRATE
     Indication: Dementia
     Dosage: 34 MILLIGRAM, QD
     Route: 048
  2. NUPLAZID [Suspect]
     Active Substance: PIMAVANSERIN TARTRATE
     Indication: Psychotic disorder
  3. ASPIRIN [Concomitant]
     Active Substance: ASPIRIN
  4. MINERALS\VITAMINS [Concomitant]
     Active Substance: MINERALS\VITAMINS
  5. ELIQUIS [Concomitant]
     Active Substance: APIXABAN
  6. ESCITALOPRAM [Concomitant]
     Active Substance: ESCITALOPRAM OXALATE
  7. ISOSORBIDE [ISOSORBIDE MONONITRATE] [Concomitant]
  8. LANSOPRAZOLE [Concomitant]
     Active Substance: LANSOPRAZOLE
  9. LOSARTAN [Concomitant]
     Active Substance: LOSARTAN
  10. MEMANTINE [Concomitant]
     Active Substance: MEMANTINE
  11. METOPROLOL [Concomitant]
     Active Substance: METOPROLOL
  12. NORTRIPTYLINE [Concomitant]
     Active Substance: NORTRIPTYLINE
  13. ONDANSETRON [Concomitant]
     Active Substance: ONDANSETRON
  14. QUETIAPINE FUMARATE [Concomitant]
     Active Substance: QUETIAPINE FUMARATE
  15. SIMVASTATIN [Concomitant]
     Active Substance: SIMVASTATIN
  16. SYNTHROID [Concomitant]
     Active Substance: LEVOTHYROXINE SODIUM

REACTIONS (1)
  - Condition aggravated [Not Recovered/Not Resolved]
